FAERS Safety Report 18222149 (Version 1)
Quarter: 2020Q3

REPORT INFORMATION
  Report Type: Spontaneous
  Country: US (occurrence: US)
  Receive Date: 20200902
  Receipt Date: 20200902
  Transmission Date: 20201103
  Serious: Yes (Other)
  Sender: FDA-Public Use
  Company Number: US-PFIZER INC-2020334294

PATIENT
  Age: 3 Year
  Sex: Male

DRUGS (2)
  1. GENOTROPIN MQ [Suspect]
     Active Substance: SOMATROPIN
     Dosage: 0.4 MG (2 DAYS/WEEK (SAT/SUN))
     Dates: start: 20170707
  2. GENOTROPIN MQ [Suspect]
     Active Substance: SOMATROPIN
     Dosage: 0.2 MG, (Q (EVERY) S?T?T?S) (5 DAYS/WEEK.)
     Dates: start: 20170707

REACTIONS (2)
  - Septo-optic dysplasia [Unknown]
  - Insulin-like growth factor increased [Unknown]
